FAERS Safety Report 21536248 (Version 2)
Quarter: 2022Q4

REPORT INFORMATION
  Report Type: Report from Study
  Country: GB (occurrence: GB)
  Receive Date: 20221101
  Receipt Date: 20221215
  Transmission Date: 20230112
  Serious: Yes (Death, Other)
  Sender: FDA-Public Use
  Company Number: GB-GILEAD-2022-0602719

PATIENT
  Age: 71 Year
  Sex: Male

DRUGS (1)
  1. SOFOSBUVIR\VELPATASVIR\VOXILAPREVIR [Suspect]
     Active Substance: SOFOSBUVIR\VELPATASVIR\VOXILAPREVIR
     Indication: Chronic hepatitis C
     Dosage: 1 DOSAGE FORM (400MG/100MG/100MG)
     Route: 048
     Dates: start: 202203, end: 202209

REACTIONS (1)
  - Death [Fatal]
